FAERS Safety Report 8966828 (Version 2)
Quarter: 2013Q1

REPORT INFORMATION
  Report Type: Spontaneous
  Country: FR (occurrence: FR)
  Receive Date: 20121217
  Receipt Date: 20130313
  Transmission Date: 20140127
  Serious: Yes (Other)
  Sender: FDA-Public Use
  Company Number: FR-PFIZER INC-2012309217

PATIENT
  Sex: Male

DRUGS (3)
  1. FLUOROURACIL [Suspect]
     Indication: COLON CANCER
     Dosage: 400 MG/M2, CYCLIC
     Route: 040
     Dates: start: 2011
  2. FLUOROURACIL [Suspect]
     Dosage: 600 MG/M2, CYCLIC
     Route: 041
     Dates: start: 2011
  3. OXALIPLATIN [Concomitant]
     Indication: COLON CANCER
     Dosage: UNK, CYCLIC

REACTIONS (12)
  - Laryngeal oedema [Unknown]
  - Oedema mouth [Unknown]
  - Incorrect drug administration rate [Unknown]
  - Neuropathy peripheral [Unknown]
  - Paraesthesia [Unknown]
  - Anaesthesia [Unknown]
  - Extrasystoles [Unknown]
  - Bradycardia [Unknown]
  - Stomatitis [Unknown]
  - Gamma-glutamyltransferase increased [Unknown]
  - Macrocytosis [Unknown]
  - Hypertension [Unknown]
